FAERS Safety Report 9443019 (Version 1)
Quarter: 2013Q3

REPORT INFORMATION
  Report Type: Spontaneous
  Country: HU (occurrence: HU)
  Receive Date: 20130806
  Receipt Date: 20130806
  Transmission Date: 20140515
  Serious: Yes (Hospitalization)
  Sender: FDA-Public Use
  Company Number: HU-ACTELION-A-CH2013-86578

PATIENT
  Age: 22 Year
  Sex: Male

DRUGS (7)
  1. TRACLEER [Suspect]
     Indication: VENTRICULAR SEPTAL DEFECT
     Dosage: 125 MG, BID
     Route: 048
     Dates: start: 20100128
  2. TRACLEER [Suspect]
     Dosage: 62.5 MG, BID
     Route: 048
     Dates: start: 20091218, end: 20100128
  3. VERAPAMIL [Concomitant]
     Dosage: 60 MG, OD
  4. ALLOPURINOL [Concomitant]
     Dosage: 150 MG, BID
  5. ACETYLSALICYLIC ACID [Concomitant]
     Dosage: 100 UNK, UNK
  6. VALSARTAN [Concomitant]
     Dosage: 20 MG, UNK
  7. SILDENAFIL [Concomitant]
     Dosage: 20 MG, TID

REACTIONS (2)
  - Influenza [Recovered/Resolved]
  - Pyrexia [Recovered/Resolved]
